FAERS Safety Report 12426618 (Version 1)
Quarter: 2016Q2

REPORT INFORMATION
  Report Type: Report from Study
  Country: US (occurrence: US)
  Receive Date: 20160601
  Receipt Date: 20160601
  Transmission Date: 20160815
  Serious: Yes (Disabling, Other)
  Sender: FDA-Public Use
  Company Number: US-GILEAD-2016-0215342

PATIENT
  Age: 31 Year
  Sex: Female

DRUGS (1)
  1. LEDIPASVIR/SOFOSBUVIR [Suspect]
     Active Substance: LEDIPASVIR\SOFOSBUVIR
     Indication: HEPATITIS C
     Dosage: 1 DF, QD
     Route: 048
     Dates: start: 20160308, end: 20160503

REACTIONS (13)
  - Suicidal ideation [Recovered/Resolved]
  - Feeling abnormal [Unknown]
  - Depression [Unknown]
  - Pain [Unknown]
  - Unevaluable event [Unknown]
  - Insomnia [Unknown]
  - Nausea [Unknown]
  - General physical health deterioration [Unknown]
  - Activities of daily living impaired [Unknown]
  - Anxiety [Unknown]
  - Palpitations [Unknown]
  - Chest pain [Unknown]
  - Weight decreased [Unknown]

NARRATIVE: CASE EVENT DATE: 2016
